FAERS Safety Report 10507194 (Version 3)
Quarter: 2014Q4

REPORT INFORMATION
  Report Type: Spontaneous
  Country: JP (occurrence: JP)
  Receive Date: 20141009
  Receipt Date: 20141110
  Transmission Date: 20150528
  Serious: Yes (Hospitalization, Other)
  Sender: FDA-Public Use
  Company Number: JP-PFIZER INC-2014217120

PATIENT
  Age: 80 Year
  Sex: Female

DRUGS (13)
  1. ALDACTONE [Concomitant]
     Active Substance: SPIRONOLACTONE
     Dosage: 25 MG, DAILY
     Route: 048
  2. EBRANTIL KAKEN [Concomitant]
     Dosage: 15 MG, DAILY
     Route: 048
  3. LASIX [Concomitant]
     Active Substance: FUROSEMIDE
     Dosage: 20 MG, DAILY
     Route: 048
  4. HALF DIGOXIN [Concomitant]
     Dosage: 0.125 MG, DAILY
     Route: 048
  5. UBRETID [Concomitant]
     Active Substance: DISTIGMINE BROMIDE
     Dosage: 5 MG, DAILY
     Route: 048
  6. KETAS [Concomitant]
     Active Substance: IBUDILAST
     Dosage: 30 MG, DAILY
     Route: 048
  7. BIO-THREE [Concomitant]
     Active Substance: HERBALS
     Dosage: UNK
     Route: 048
  8. MAGNESIUM OXIDE. [Concomitant]
     Active Substance: MAGNESIUM OXIDE
     Dosage: 4.5 G, DAILY
     Route: 048
  9. ENSURE [Concomitant]
     Active Substance: AMINO ACIDS\DEXTROSE\ELECTROLYTES NOS\SOYBEAN OIL\VITAMINS
     Dosage: UNK
  10. REVATIO [Suspect]
     Active Substance: SILDENAFIL CITRATE
     Indication: PULMONARY HYPERTENSION
     Dosage: 20 MG, 3X/DAY
     Route: 048
  11. WARFARIN [Suspect]
     Active Substance: WARFARIN
     Dosage: 3 MG, DAILY
     Route: 048
  12. WARFARIN [Suspect]
     Active Substance: WARFARIN
     Dosage: UNK
     Route: 048
     Dates: start: 20140811
  13. BISOLVON [Concomitant]
     Active Substance: BROMHEXINE HYDROCHLORIDE
     Dosage: 12 MG, DAILY
     Route: 048

REACTIONS (2)
  - Subdural haematoma [Recovered/Resolved]
  - Blood pressure decreased [Not Recovered/Not Resolved]

NARRATIVE: CASE EVENT DATE: 20140706
